FAERS Safety Report 9514592 (Version 1)
Quarter: 2013Q1

REPORT INFORMATION
  Report Type: Spontaneous
  Country: US (occurrence: None)
  Receive Date: 20130305
  Receipt Date: 20130305
  Transmission Date: 20140127
  Serious: Yes (Other)
  Sender: FDA-Public Use
  Company Number: 163-21880-12112216

PATIENT
  Sex: Male
  Weight: 70.31 kg

DRUGS (9)
  1. REVLIMID [Suspect]
     Indication: NON-HODGKIN^S LYMPHOMA
     Dosage: 20 MG, 2 IN 1 D, PO
     Route: 048
     Dates: start: 20121019
  2. FISH OIL (FISH OIL) [Concomitant]
  3. MAGNESIUM (MAGNESIUM) [Concomitant]
  4. VITAMINS [Concomitant]
  5. PRILOSEC (OMEPRAZOLE) (CAPSULES) [Concomitant]
  6. RITUXAN (RITUXIMAB) [Concomitant]
  7. SUPER B COMPLEX (CAPSULES) [Concomitant]
  8. SYNTHROID (LEVOTHYROXINE SODIUM) [Concomitant]
  9. ZYRTEC (CETIRIZINE HYDROCHLORIDE0 (TABLETS) [Concomitant]

REACTIONS (4)
  - Tumour flare [None]
  - Dizziness [None]
  - Lethargy [None]
  - Fatigue [None]
